FAERS Safety Report 12605559 (Version 1)
Quarter: 2016Q3

REPORT INFORMATION
  Report Type: Spontaneous
  Country: NZ (occurrence: NZ)
  Receive Date: 20160729
  Receipt Date: 20160729
  Transmission Date: 20161109
  Serious: Yes (Other)
  Sender: FDA-Public Use
  Company Number: NZ-APOTEX-2016AP009982

PATIENT
  Age: 56 Year
  Sex: Male

DRUGS (1)
  1. ATORVASTATIN TABLETS [Suspect]
     Active Substance: ATORVASTATIN
     Indication: PRODUCT USED FOR UNKNOWN INDICATION
     Dosage: 40MG/DAY
     Route: 065
     Dates: end: 201301

REACTIONS (1)
  - Immune-mediated necrotising myopathy [Recovering/Resolving]
